FAERS Safety Report 14467475 (Version 2)
Quarter: 2019Q1

REPORT INFORMATION
  Report Type: Spontaneous
  Country: US (occurrence: US)
  Receive Date: 20180131
  Receipt Date: 20190305
  Transmission Date: 20190417
  Serious: No
  Sender: FDA-Public Use
  Company Number: US-ALLERGAN-1714188US

PATIENT
  Sex: Female

DRUGS (2)
  1. AMOXICILLIN. [Concomitant]
     Active Substance: AMOXICILLIN
     Indication: BRONCHITIS
     Dosage: UNK
     Route: 065
  2. SAVELLA [Suspect]
     Active Substance: MILNACIPRAN HYDROCHLORIDE
     Indication: FIBROMYALGIA
     Dosage: 100 MG, BID
     Route: 048

REACTIONS (6)
  - Gait inability [Not Recovered/Not Resolved]
  - Fall [Unknown]
  - Bedridden [Not Recovered/Not Resolved]
  - Withdrawal syndrome [Unknown]
  - Pain [Recovering/Resolving]
  - Product dose omission [Unknown]
